FAERS Safety Report 9499950 (Version 1)
Quarter: 2013Q3

REPORT INFORMATION
  Report Type: Spontaneous
  Country: US (occurrence: US)
  Receive Date: 20130905
  Receipt Date: 20130905
  Transmission Date: 20140515
  Serious: No
  Sender: FDA-Public Use
  Company Number: US-PFIZER INC-2013252265

PATIENT
  Age: 60 Year
  Sex: Female
  Weight: 62.6 kg

DRUGS (2)
  1. PREMARIN [Suspect]
     Indication: VULVOVAGINAL DRYNESS
     Dosage: UNK, 2X/WEEK
     Route: 067
     Dates: start: 2012, end: 201301
  2. PREMARIN [Suspect]
     Indication: VULVOVAGINAL PRURITUS

REACTIONS (2)
  - Skin discolouration [Unknown]
  - Wrong technique in drug usage process [Unknown]
